FAERS Safety Report 24192698 (Version 1)
Quarter: 2024Q3

REPORT INFORMATION
  Report Type: Spontaneous
  Country: US (occurrence: US)
  Receive Date: 20240809
  Receipt Date: 20240809
  Transmission Date: 20241017
  Serious: Yes (Other)
  Sender: QUAGEN PHARMACEUTICALS
  Company Number: US-QUAGEN-2024QUALIT00236

PATIENT
  Age: 71 Year
  Sex: Male

DRUGS (3)
  1. FLUOCINOLONE ACETONIDE [Suspect]
     Active Substance: FLUOCINOLONE ACETONIDE
     Indication: Skin test
     Route: 065
  2. HYDROCORTISONE [Suspect]
     Active Substance: HYDROCORTISONE\HYDROCORTISONE ACETATE
     Indication: Skin test
     Route: 065
  3. HYDROCORTISONE [Suspect]
     Active Substance: HYDROCORTISONE\HYDROCORTISONE ACETATE
     Indication: Crohn^s disease
     Route: 061

REACTIONS (1)
  - Type I hypersensitivity [Unknown]
